FAERS Safety Report 13433369 (Version 2)
Quarter: 2017Q2

REPORT INFORMATION
  Report Type: Spontaneous
  Country: US (occurrence: US)
  Receive Date: 20170412
  Receipt Date: 20170424
  Transmission Date: 20170830
  Serious: Yes (Other)
  Sender: FDA-Public Use
  Company Number: US-PFIZER INC-2017139606

PATIENT
  Sex: Female
  Weight: 61.69 kg

DRUGS (1)
  1. CHAPSTICK MOISTURIZER [Suspect]
     Active Substance: OCTINOXATE\OXYBENZONE\PETROLATUM
     Indication: LIP DRY
     Dosage: UNK
     Dates: start: 2011, end: 2012

REACTIONS (5)
  - Lip blister [Recovered/Resolved]
  - Lip exfoliation [Unknown]
  - Lip infection [Unknown]
  - Malaise [Unknown]
  - Lip pain [Unknown]
